FAERS Safety Report 23317131 (Version 5)
Quarter: 2024Q4

REPORT INFORMATION
  Report Type: Spontaneous
  Country: AU (occurrence: AU)
  Receive Date: 20231219
  Receipt Date: 20241226
  Transmission Date: 20250115
  Serious: Yes (Hospitalization)
  Sender: CSL BEHRING
  Company Number: AU-BEH-2023166377

PATIENT
  Age: 2 Year
  Sex: Male
  Weight: 14.5 kg

DRUGS (12)
  1. HUMAN IMMUNOGLOBULIN G [Suspect]
     Active Substance: HUMAN IMMUNOGLOBULIN G
     Indication: Bacterial infection
     Dosage: 5 GRAM, QMT
     Route: 042
     Dates: start: 20230718, end: 20230718
  2. HUMAN IMMUNOGLOBULIN G [Suspect]
     Active Substance: HUMAN IMMUNOGLOBULIN G
     Indication: Hypogammaglobulinaemia
     Dosage: 5 GRAM, SINGLE
     Route: 042
     Dates: start: 20231227, end: 20231227
  3. CHLORAL HYDRATE [Concomitant]
     Active Substance: CHLORAL HYDRATE
     Dosage: 370 MG
     Dates: start: 20230718
  4. METHOTREXATE [Concomitant]
     Active Substance: METHOTREXATE
     Indication: B-cell type acute leukaemia
     Dosage: 25 MILLIGRAM, QW6 TABLETS PER WEEK
  5. METHOTREXATE [Concomitant]
     Active Substance: METHOTREXATE
     Dosage: 25 MILLIGRAM
     Dates: start: 20231224
  6. MERCAPTOPURINE [Concomitant]
     Active Substance: MERCAPTOPURINE
     Indication: B-cell type acute leukaemia
     Dosage: 6 DOSAGE FORM, QW 6 TABLETS PER WEEK
  7. MERCAPTOPURINE [Concomitant]
     Active Substance: MERCAPTOPURINE
     Dosage: 50 MILLIGRAM
     Dates: start: 20231224
  8. CYCLIZINE [Concomitant]
     Active Substance: CYCLIZINE
     Indication: Nausea
     Dosage: 13 MG
     Dates: start: 20230718
  9. METOCLOPRAMIDE [Concomitant]
     Active Substance: METOCLOPRAMIDE
     Indication: Nausea
     Dosage: 1.5 MILLIGRAM
     Dates: start: 20231226
  10. ONDANSETRON [Concomitant]
     Active Substance: ONDANSETRON
     Indication: Nausea
     Dosage: 4 MILLIGRAM
     Dates: start: 20231226
  11. PIPERACILLIN SODIUM\TAZOBACTAM SODIUM [Concomitant]
     Active Substance: PIPERACILLIN SODIUM\TAZOBACTAM SODIUM
     Indication: Pyrexia
     Dosage: 1500 MILLIGRAM
     Dates: start: 20231226
  12. DEXAMETHASONE [Concomitant]
     Active Substance: DEXAMETHASONE
     Indication: B-cell type acute leukaemia
     Dosage: 4 MILLIGRAM
     Dates: start: 20231224

REACTIONS (22)
  - Chills [Recovered/Resolved]
  - Incorrect drug administration rate [Recovered/Resolved]
  - Pallor [Recovered/Resolved]
  - Incorrect drug administration rate [Recovered/Resolved]
  - Lethargy [Recovered/Resolved]
  - Incorrect drug administration rate [Recovered/Resolved]
  - Vomiting [Recovered/Resolved]
  - Body temperature increased [Recovered/Resolved]
  - Incorrect drug administration rate [Recovered/Resolved]
  - Heart rate increased [Recovered/Resolved]
  - Incorrect drug administration rate [Recovered/Resolved]
  - Parainfluenzae virus infection [Unknown]
  - Incorrect drug administration rate [Recovered/Resolved]
  - Chills [Recovered/Resolved]
  - Incorrect drug administration rate [Recovered/Resolved]
  - Pyrexia [Recovered/Resolved]
  - Incorrect drug administration rate [Recovered/Resolved]
  - Tachypnoea [Recovered/Resolved]
  - Incorrect drug administration rate [Recovered/Resolved]
  - Tachycardia [Recovered/Resolved]
  - Incorrect drug administration rate [Recovered/Resolved]
  - Pyrexia [Recovered/Resolved]

NARRATIVE: CASE EVENT DATE: 20230718
